FAERS Safety Report 10252016 (Version 1)
Quarter: 2014Q2

REPORT INFORMATION
  Report Type: Spontaneous
  Country: BR (occurrence: BR)
  Receive Date: 20140623
  Receipt Date: 20140623
  Transmission Date: 20141212
  Serious: Yes (Other)
  Sender: FDA-Public Use
  Company Number: BR-JNJFOC-20140607047

PATIENT
  Age: 53 Year
  Sex: Female

DRUGS (2)
  1. DOXORUBICIN HYDROCHLORIDE [Suspect]
     Indication: METAPLASTIC BREAST CARCINOMA
     Route: 065
  2. IFOSFAMIDE [Suspect]
     Indication: METAPLASTIC BREAST CARCINOMA
     Route: 065

REACTIONS (1)
  - Pancytopenia [Unknown]
